FAERS Safety Report 14176948 (Version 1)
Quarter: 2017Q4

REPORT INFORMATION
  Report Type: Spontaneous
  Country: GB (occurrence: GB)
  Receive Date: 20171110
  Receipt Date: 20171110
  Transmission Date: 20180321
  Serious: Yes (Disabling)
  Sender: FDA-Public Use
  Company Number: GB-CONCORDIA PHARMACEUTICALS INC.-GSH201602-001078

PATIENT
  Age: 90 Year
  Sex: Male

DRUGS (12)
  1. LEVOFLOXACIN. [Suspect]
     Active Substance: LEVOFLOXACIN
     Indication: INFECTIVE EXACERBATION OF CHRONIC OBSTRUCTIVE AIRWAYS DISEASE
     Route: 048
     Dates: start: 20151224
  2. ATORVASTATIN [Concomitant]
     Active Substance: ATORVASTATIN
  3. NICORANDIL [Concomitant]
     Active Substance: NICORANDIL
  4. OMEPRAZOLE. [Concomitant]
     Active Substance: OMEPRAZOLE
  5. PREDNISOLONE. [Suspect]
     Active Substance: PREDNISOLONE
     Indication: INFECTIVE EXACERBATION OF CHRONIC OBSTRUCTIVE AIRWAYS DISEASE
     Dates: start: 20151224
  6. ASPIRIN. [Concomitant]
     Active Substance: ASPIRIN
  7. CHEMYDUR XL [Concomitant]
  8. BISOPROLOL [Concomitant]
     Active Substance: BISOPROLOL
  9. SALBUTAMOL [Concomitant]
     Active Substance: ALBUTEROL
  10. FINASTERIDE. [Concomitant]
     Active Substance: FINASTERIDE
  11. TAMSULOSIN [Concomitant]
     Active Substance: TAMSULOSIN
  12. TIOTROPIUM [Concomitant]
     Active Substance: TIOTROPIUM

REACTIONS (2)
  - Tendon rupture [Not Recovered/Not Resolved]
  - Joint swelling [Not Recovered/Not Resolved]

NARRATIVE: CASE EVENT DATE: 20151226
